FAERS Safety Report 25609205 (Version 1)
Quarter: 2025Q3

REPORT INFORMATION
  Report Type: Report from Study
  Country: US (occurrence: US)
  Receive Date: 20250727
  Receipt Date: 20250727
  Transmission Date: 20251021
  Serious: Yes (Other)
  Sender: DR REDDYS
  Company Number: US-DRL-USA-USA/2025/07/010899

PATIENT
  Age: 29 Year

DRUGS (1)
  1. ACCUTANE [Suspect]
     Active Substance: ISOTRETINOIN
     Indication: Product used for unknown indication
     Route: 065
     Dates: start: 20250109, end: 20250520

REACTIONS (7)
  - Exposure during pregnancy [Unknown]
  - Deafness [Unknown]
  - Idiopathic intracranial hypertension [Unknown]
  - Headache [Unknown]
  - Nausea [Unknown]
  - Therapy cessation [Unknown]
  - Visual impairment [Unknown]

NARRATIVE: CASE EVENT DATE: 20250707
